FAERS Safety Report 10457109 (Version 6)
Quarter: 2015Q1

REPORT INFORMATION
  Report Type: Report from Study
  Country: DE (occurrence: DE)
  Receive Date: 20140916
  Receipt Date: 20150113
  Transmission Date: 20150720
  Serious: Yes (Hospitalization)
  Sender: FDA-Public Use
  Company Number: DE-SA-2014SA122842

PATIENT
  Age: 46 Year
  Sex: Male

DRUGS (2)
  1. ALL OTHER THERAPEUTIC PRODUCTS [Concomitant]
     Active Substance: UNSPECIFIED INGREDIENT
     Indication: COGNITIVE DISORDER
     Route: 048
  2. AUBAGIO [Suspect]
     Active Substance: TERIFLUNOMIDE
     Indication: MULTIPLE SCLEROSIS
     Route: 048
     Dates: start: 20140418

REACTIONS (14)
  - Steroid therapy [Unknown]
  - Erectile dysfunction [Unknown]
  - Hypoaesthesia [Recovering/Resolving]
  - Peripheral swelling [Recovering/Resolving]
  - Nasal congestion [Not Recovered/Not Resolved]
  - Sinus disorder [Not Recovered/Not Resolved]
  - Hypoaesthesia [Not Recovered/Not Resolved]
  - Alopecia [Not Recovered/Not Resolved]
  - Stress [Recovered/Resolved]
  - Headache [Not Recovered/Not Resolved]
  - Dizziness [Not Recovered/Not Resolved]
  - Multiple sclerosis relapse [Recovering/Resolving]
  - Influenza like illness [Not Recovered/Not Resolved]
  - Formication [Recovered/Resolved]

NARRATIVE: CASE EVENT DATE: 201408
